FAERS Safety Report 13551589 (Version 1)
Quarter: 2017Q2

REPORT INFORMATION
  Report Type: Spontaneous
  Country: PL (occurrence: PL)
  Receive Date: 20170516
  Receipt Date: 20170516
  Transmission Date: 20170830
  Serious: Yes (Life-Threatening, Hospitalization)
  Sender: FDA-Public Use
  Company Number: PL-TEVA-767545ISR

PATIENT
  Age: 78 Year
  Sex: Female

DRUGS (17)
  1. PERAZINE [Interacting]
     Active Substance: PERAZINE
     Indication: SLEEP DISORDER
  2. IBUPROFEN. [Concomitant]
     Active Substance: IBUPROFEN
  3. PERAZINE [Interacting]
     Active Substance: PERAZINE
     Indication: ABNORMAL BEHAVIOUR
     Dosage: 200 MILLIGRAM DAILY;
  4. CHLORPROTHIXENE [Interacting]
     Active Substance: CHLORPROTHIXENE
     Indication: SLEEP DISORDER
  5. POTASSIUM [Concomitant]
     Active Substance: POTASSIUM
  6. ACATAR ACTITABS [Interacting]
     Active Substance: PSEUDOEPHEDRINE\TRIPROLIDINE
     Indication: UPPER RESPIRATORY TRACT INFECTION
  7. PARACETAMOL [Concomitant]
     Active Substance: ACETAMINOPHEN
  8. QUETIAPINE. [Interacting]
     Active Substance: QUETIAPINE
     Indication: ABNORMAL BEHAVIOUR
  9. CLARITHROMYCIN. [Interacting]
     Active Substance: CLARITHROMYCIN
     Indication: UPPER RESPIRATORY TRACT INFECTION
     Dosage: 1000 MILLIGRAM DAILY;
     Route: 048
  10. PARACETAMOL + TRAMADOL [Concomitant]
  11. METAMIZOLE [Concomitant]
     Active Substance: METAMIZOLE
  12. XYLOMETAZOLINE [Concomitant]
     Active Substance: XYLOMETAZOLINE
  13. HYDROXYZINE [Suspect]
     Active Substance: HYDROXYZINE HYDROCHLORIDE
     Indication: SLEEP DISORDER
     Dosage: OCCASIONALLY 50 MG AT NIGHT
  14. QUETIAPINE. [Interacting]
     Active Substance: QUETIAPINE
     Indication: SLEEP DISORDER
     Dosage: 200 MILLIGRAM DAILY;
  15. CHLORPROTHIXENE [Interacting]
     Active Substance: CHLORPROTHIXENE
     Indication: ABNORMAL BEHAVIOUR
     Dosage: 150 MILLIGRAM DAILY;
  16. HYDROXYZINE [Interacting]
     Active Substance: HYDROXYZINE HYDROCHLORIDE
     Indication: ABNORMAL BEHAVIOUR
  17. NORMATENS (CLOPAMIDE\DIHYDROERGOCRISTINE\RESERPINE) [Interacting]
     Active Substance: CLOPAMIDE\DIHYDROERGOCRISTINE\RESERPINE

REACTIONS (2)
  - Drug interaction [Unknown]
  - Neuroleptic malignant syndrome [Unknown]
